FAERS Safety Report 6642003-2 (Version None)
Quarter: 2010Q1

REPORT INFORMATION
  Report Type: 
  Country: None (occurrence: None)
  Receive Date: 20100319
  Receipt Date: 20100310
  Transmission Date: 20100710
  Serious: Yes (Hospitalization, Other)
  Sender: FDA-Public Use
  Company Number: US-JNJFOC-20100303657

PATIENT
  Sex: Female
  Weight: 71.22 kg

DRUGS (5)
  1. REMICADE [Suspect]
     Indication: CROHN'S DISEASE
     Route: 042
  2. REMICADE [Suspect]
     Route: 042
  3. LORTAB [Concomitant]
     Indication: PAIN
  4. VITAMIN D [Concomitant]
  5. BALSALAZIDE [Concomitant]
     Indication: CROHN'S DISEASE

REACTIONS (2)
  - FISTULA [None]
  - MYALGIA [None]
